FAERS Safety Report 16634968 (Version 2)
Quarter: 2019Q4

REPORT INFORMATION
  Report Type: Spontaneous
  Country: US (occurrence: US)
  Receive Date: 20190726
  Receipt Date: 20191024
  Transmission Date: 20200122
  Serious: Yes (Hospitalization)
  Sender: FDA-Public Use
  Company Number: US-EMMAUS MEDICAL, INC.-EMM201906-000188

PATIENT
  Sex: Female

DRUGS (8)
  1. VITAMIN D [Concomitant]
     Active Substance: VITAMIN D NOS
     Indication: PRODUCT USED FOR UNKNOWN INDICATION
  2. PENICILLIN [Concomitant]
     Active Substance: PENICILLIN
     Indication: PRODUCT USED FOR UNKNOWN INDICATION
  3. ENDARI [Suspect]
     Active Substance: GLUTAMINE
     Indication: PAIN
  4. DILAUDID [Concomitant]
     Active Substance: HYDROMORPHONE HYDROCHLORIDE
     Indication: PRODUCT USED FOR UNKNOWN INDICATION
  5. HYDROXYUREA. [Concomitant]
     Active Substance: HYDROXYUREA
     Indication: PAIN
  6. FOLIC ACID. [Concomitant]
     Active Substance: FOLIC ACID
     Indication: PAIN
  7. ENDARI [Suspect]
     Active Substance: GLUTAMINE
     Indication: SICKLE CELL DISEASE
     Route: 048
     Dates: start: 20190422
  8. OXYCODONE [Concomitant]
     Active Substance: OXYCODONE
     Indication: PAIN

REACTIONS (4)
  - Product dose omission [Unknown]
  - Vomiting [Not Recovered/Not Resolved]
  - Adverse drug reaction [Unknown]
  - Pain [Not Recovered/Not Resolved]
